FAERS Safety Report 7491300-X (Version None)
Quarter: 2011Q2

REPORT INFORMATION
  Report Type: 
  Country: None (occurrence: None)
  Receive Date: 20110519
  Receipt Date: 20110512
  Transmission Date: 20111010
  Serious: Yes (Hospitalization)
  Sender: FDA-Public Use
  Company Number: B0715738A

PATIENT
  Sex: Male

DRUGS (7)
  1. RISPERDAL [Suspect]
     Route: 048
     Dates: end: 20110301
  2. ANTIHYPERTENSIVE (UNSPECIFIED) [Concomitant]
     Route: 065
  3. ACETAMINOPHEN [Concomitant]
     Indication: PAIN
     Route: 065
  4. LAMALINE [Concomitant]
     Indication: PAIN
     Route: 065
  5. REQUIP [Suspect]
     Dosage: 2MG FOUR TIMES PER DAY
     Route: 048
     Dates: end: 20110301
  6. TRAMADOL HCL [Suspect]
     Route: 048
     Dates: end: 20110301
  7. DIALGIREX [Suspect]
     Route: 048
     Dates: end: 20110301

REACTIONS (7)
  - CONFUSIONAL STATE [None]
  - AGITATION [None]
  - TRANCE [None]
  - ABNORMAL BEHAVIOUR [None]
  - DELIRIUM [None]
  - HALLUCINATION, VISUAL [None]
  - RAPID EYE MOVEMENTS SLEEP ABNORMAL [None]
